FAERS Safety Report 7486779-3 (Version None)
Quarter: 2011Q2

REPORT INFORMATION
  Report Type: 
  Country: None (occurrence: None)
  Receive Date: 20110517
  Receipt Date: 20101020
  Transmission Date: 20111010
  Serious: No
  Sender: FDA-Public Use
  Company Number: US-NOVEN-ALL1-2010-04475

PATIENT
  Sex: Male
  Weight: 29.025 kg

DRUGS (4)
  1. DAYTRANA [Suspect]
     Dosage: 20 MG, 1X/DAY:QD
     Route: 062
     Dates: start: 20100701, end: 20100801
  2. RISPERIDONE [Concomitant]
  3. TRAZODONE HCL [Concomitant]
     Dosage: 75 MG, 1X/DAY:QD
     Route: 048
     Dates: start: 20070101
  4. RISPERIDONE [Concomitant]
     Dosage: .5 MG, 1X/DAY:QD
     Route: 048
     Dates: start: 20100601

REACTIONS (4)
  - LIMB DISCOMFORT [None]
  - PAIN IN EXTREMITY [None]
  - APPLICATION SITE PAIN [None]
  - APPLICATION SITE IRRITATION [None]
